FAERS Safety Report 6730890-9 (Version None)
Quarter: 2010Q2

REPORT INFORMATION
  Report Type: 
  Country: None (occurrence: None)
  Receive Date: 20100518
  Receipt Date: 20100505
  Transmission Date: 20101027
  Serious: Yes (Other)
  Sender: FDA-Public Use
  Company Number: PHFR2010GB00509

PATIENT

DRUGS (2)
  1. RITALIN [Suspect]
     Route: 065
  2. CLONIDINE [Concomitant]

REACTIONS (1)
  - DYSPHAGIA [None]
